FAERS Safety Report 13590396 (Version 1)
Quarter: 2017Q2

REPORT INFORMATION
  Report Type: Spontaneous
  Country: US (occurrence: US)
  Receive Date: 20170529
  Receipt Date: 20170529
  Transmission Date: 20170830
  Serious: Yes (Life-Threatening, Other)
  Sender: FDA-Public Use
  Company Number: None

PATIENT
  Age: 27 Year
  Sex: Female
  Weight: 65.7 kg

DRUGS (6)
  1. MIRTAZAPINE TABLETS USP, 15MG [Suspect]
     Active Substance: MIRTAZAPINE
     Indication: DEPRESSION
     Dosage: QUANTITY:1 TABLET(S); AT BEDTIME?
     Route: 048
     Dates: start: 20170516, end: 20170524
  2. KIRKLAND FISH OIL [Concomitant]
  3. PROPRANOLOL [Concomitant]
     Active Substance: PROPRANOLOL HYDROCHLORIDE
  4. KIRKLAND ADULT MULTIVITAMIN [Concomitant]
  5. SERTRALINE [Concomitant]
     Active Substance: SERTRALINE HYDROCHLORIDE
  6. MIRTAZAPINE TABLETS USP, 15MG [Suspect]
     Active Substance: MIRTAZAPINE
     Indication: INSOMNIA
     Dosage: QUANTITY:1 TABLET(S); AT BEDTIME?
     Route: 048
     Dates: start: 20170516, end: 20170524

REACTIONS (9)
  - Somnambulism [None]
  - Hallucination, auditory [None]
  - Somnolence [None]
  - Hyperphagia [None]
  - Hypersomnia [None]
  - Impaired work ability [None]
  - Impaired driving ability [None]
  - Alcohol use [None]
  - Weight increased [None]

NARRATIVE: CASE EVENT DATE: 20170524
